FAERS Safety Report 7455685-2 (Version None)
Quarter: 2011Q2

REPORT INFORMATION
  Report Type: 
  Country: None (occurrence: None)
  Receive Date: 20110503
  Receipt Date: 20110428
  Transmission Date: 20111010
  Serious: Yes (Hospitalization)
  Sender: FDA-Public Use
  Company Number: US-B.I. PHARMACEUTICALS,INC./RIDGEFIELD-2011-BP-08949BP

PATIENT
  Age: 84 Year
  Sex: Female
  Weight: 61.5 kg

DRUGS (3)
  1. PRADAXA [Suspect]
     Indication: CORONARY ARTERY DISEASE
  2. ASPIRIN [Concomitant]
     Dosage: 81 MG
  3. PRADAXA [Suspect]
     Indication: ATRIAL FIBRILLATION
     Dosage: 150 MG
     Dates: end: 20110316

REACTIONS (1)
  - LOWER GASTROINTESTINAL HAEMORRHAGE [None]
